FAERS Safety Report 9206009 (Version 1)
Quarter: 2013Q1

REPORT INFORMATION
  Report Type: Spontaneous
  Country: US (occurrence: None)
  Receive Date: 20120731
  Receipt Date: 20120731
  Transmission Date: 20140127
  Serious: Yes (Other)
  Sender: FDA-Public Use
  Company Number: ADE12-065

PATIENT
  Age: 65 Year
  Sex: Female
  Weight: 73.94 kg

DRUGS (8)
  1. HEPARIN SODIUM [Suspect]
     Indication: CORONARY ARTERY BYPASS
     Dates: start: 20120430
  2. ASPIRIN [Concomitant]
  3. PLAVIX [Concomitant]
  4. LIPITOR [Concomitant]
  5. NOVOLIN N [Concomitant]
  6. NOVOLOG [Concomitant]
  7. XANAX [Concomitant]
  8. PERCOCET [Concomitant]

REACTIONS (1)
  - Heparin-induced thrombocytopenia [None]
